FAERS Safety Report 23868882 (Version 1)
Quarter: 2024Q2

REPORT INFORMATION
  Report Type: Spontaneous
  Country: US (occurrence: None)
  Receive Date: 20240516
  Receipt Date: 20240516
  Transmission Date: 20240715
  Serious: Yes (Other)
  Sender: FDA-Public Use
  Company Number: None

PATIENT
  Age: 39 Year
  Sex: Female
  Weight: 84 kg

DRUGS (2)
  1. RYSTIGGO [Suspect]
     Active Substance: ROZANOLIXIZUMAB-NOLI
     Dosage: OTHER FREQUENCY : WEEKLY;?
     Route: 058
     Dates: start: 20240501, end: 20240506
  2. ACETAMINOPHEN [Concomitant]

REACTIONS (4)
  - Headache [None]
  - Nausea [None]
  - Hypoaesthesia [None]
  - Infusion related reaction [None]

NARRATIVE: CASE EVENT DATE: 20240504
